FAERS Safety Report 11545115 (Version 1)
Quarter: 2015Q3

REPORT INFORMATION
  Report Type: Spontaneous
  Country: GB (occurrence: GB)
  Receive Date: 20150924
  Receipt Date: 20150924
  Transmission Date: 20151125
  Serious: Yes (Disabling)
  Sender: FDA-Public Use
  Company Number: GB-JNJFOC-20150907840

PATIENT
  Sex: Female

DRUGS (1)
  1. COCODAMOL [Suspect]
     Active Substance: ACETAMINOPHEN\CODEINE PHOSPHATE
     Indication: PRODUCT USED FOR UNKNOWN INDICATION
     Dosage: DOSE: 3 (UNIT UNSPECIFIED). TWO TABLETS AT NIGHT AND ONE IN THE MORNING.
     Route: 065

REACTIONS (3)
  - Paresis [Unknown]
  - Malaise [Unknown]
  - Loss of control of legs [Unknown]
